FAERS Safety Report 7266014-1 (Version None)
Quarter: 2011Q1

REPORT INFORMATION
  Report Type: 
  Country: None (occurrence: None)
  Receive Date: 20110131
  Receipt Date: 20110125
  Transmission Date: 20110831
  Serious: Yes (Other)
  Sender: FDA-Public Use
  Company Number: US-PFIZER INC-2010141216

PATIENT
  Sex: Male

DRUGS (2)
  1. CLONAZEPAM [Concomitant]
     Dosage: UNK
     Dates: start: 20050101, end: 20080101
  2. CHANTIX [Suspect]
     Indication: SMOKING CESSATION THERAPY
     Dosage: UNK
     Dates: start: 20071201, end: 20080114

REACTIONS (4)
  - MENTAL DISORDER [None]
  - DEPRESSION [None]
  - SUICIDE ATTEMPT [None]
  - ANXIETY [None]
